FAERS Safety Report 8621601 (Version 6)
Quarter: 2014Q2

REPORT INFORMATION
  Report Type: Spontaneous
  Country: US (occurrence: US)
  Receive Date: 20120619
  Receipt Date: 20140415
  Transmission Date: 20141212
  Serious: Yes (Hospitalization)
  Sender: FDA-Public Use
  Company Number: US-UCBSA-059492

PATIENT
  Age: 67 Year
  Sex: Female
  Weight: 68.4 kg

DRUGS (10)
  1. CIMZIA [Suspect]
     Indication: CROHN^S DISEASE
     Route: 058
     Dates: start: 20091120
  2. DEMERAL [Suspect]
     Indication: PAIN
     Dosage: UNKNOWN DOSE
  3. METOCLOPRAMIDE HCL [Concomitant]
     Dosage: DOSE: 10 MG, 1 TABLET 30 MINUTES BEFORE MEALS AND BED TIME
     Route: 048
  4. DIPHENOXYLATE-ATROPINE [Concomitant]
     Indication: DIARRHOEA
     Dosage: DOSE: 2.5 - 0.0025 MG, 2 TABLETS 4 TIMES DAILY
     Route: 048
  5. FOLIC - B12 TABS [Concomitant]
     Dosage: UNKNOWN DOSE
  6. FOSAMAX [Concomitant]
     Dosage: UNKNOWN DOSE
  7. SYNTHROID [Concomitant]
     Dosage: DOSE: 125 MCG
     Route: 048
  8. WELLBUTRIN SR [Concomitant]
     Dosage: DOSE: 150 MG, 1 TABLET TWICE DAILY
  9. LOMOTIL [Concomitant]
     Indication: DIARRHOEA
  10. REGLAN [Concomitant]
     Indication: GASTRIC DISORDER

REACTIONS (7)
  - Humerus fracture [Recovering/Resolving]
  - Intestinal obstruction [Not Recovered/Not Resolved]
  - Fall [Not Recovered/Not Resolved]
  - Urinary tract infection [Recovered/Resolved]
  - Tongue ulceration [Recovering/Resolving]
  - Loose tooth [Recovered/Resolved]
  - Dental caries [Recovered/Resolved]
